FAERS Safety Report 4553381-2 (Version None)
Quarter: 2005Q1

REPORT INFORMATION
  Report Type: 
  Country: None (occurrence: None)
  Receive Date: 20050112
  Receipt Date: 20050104
  Transmission Date: 20050727
  Serious: Yes (Life-Threatening, Hospitalization)
  Sender: FDA-Public Use
  Company Number: 2005GB00033

PATIENT
  Age: 77 Year
  Sex: Male

DRUGS (11)
  1. BUPIVACAINE [Suspect]
     Indication: ANAESTHESIA
     Dosage: 9 ML DAILY ED
     Route: 008
  2. BUPIVACAINE [Suspect]
     Indication: ANAESTHESIA
     Dosage: 4 ML ONCE ED
     Route: 008
  3. FENTANYL [Suspect]
     Dosage: 25 UG/HR TD
     Route: 062
  4. DIAMORPHINE [Suspect]
     Indication: POSTOPERATIVE ANALGESIA
     Dosage: 4 ML /HR ED
     Route: 008
  5. PHARMANIAGA AMOXYCILLIN [Concomitant]
  6. HYOSCINE HBR HYT [Concomitant]
  7. NITROUS OXIDE [Concomitant]
  8. OXYGEN [Concomitant]
  9. ISOFLURANE [Concomitant]
  10. ATRACURIUM BESYLATE [Concomitant]
  11. CO-PROXAMOL [Concomitant]

REACTIONS (7)
  - AGITATION [None]
  - BODY TEMPERATURE DECREASED [None]
  - COMA [None]
  - DRUG INTERACTION [None]
  - OVERDOSE [None]
  - POST PROCEDURAL PAIN [None]
  - RESPIRATORY FAILURE [None]
